FAERS Safety Report 7506332-2 (Version None)
Quarter: 2011Q2

REPORT INFORMATION
  Report Type: 
  Country: None (occurrence: None)
  Receive Date: 20110526
  Receipt Date: 20100730
  Transmission Date: 20111010
  Serious: No
  Sender: FDA-Public Use
  Company Number: US-ABBOTT-10P-163-0662038-00

PATIENT
  Sex: Female
  Weight: 68.1 kg

DRUGS (13)
  1. LIPITOR [Concomitant]
     Indication: PRODUCT USED FOR UNKNOWN INDICATION
  2. ZYRTEC [Concomitant]
     Indication: PRODUCT USED FOR UNKNOWN INDICATION
  3. FOZLO [Concomitant]
     Indication: PRODUCT USED FOR UNKNOWN INDICATION
  4. ZEMPLAR [Suspect]
     Route: 048
     Dates: end: 20100501
  5. PREDNISONE [Concomitant]
     Indication: PRODUCT USED FOR UNKNOWN INDICATION
  6. TEGRETOL [Concomitant]
     Indication: PRODUCT USED FOR UNKNOWN INDICATION
  7. EPOGEN [Concomitant]
     Indication: ANAEMIA
  8. ZEMPLAR [Suspect]
     Route: 048
     Dates: start: 20100501
  9. ASPIRIN [Concomitant]
     Indication: PRODUCT USED FOR UNKNOWN INDICATION
  10. FERRLECIT [Concomitant]
     Indication: PRODUCT USED FOR UNKNOWN INDICATION
  11. ZEMPLAR [Suspect]
     Indication: HYPERPARATHYROIDISM
     Route: 048
  12. PRILOSEC [Concomitant]
     Indication: PRODUCT USED FOR UNKNOWN INDICATION
  13. NEPHROCAP [Concomitant]
     Indication: PRODUCT USED FOR UNKNOWN INDICATION

REACTIONS (5)
  - DRY MOUTH [None]
  - FEELING ABNORMAL [None]
  - FATIGUE [None]
  - DIZZINESS [None]
  - SOMNOLENCE [None]
